FAERS Safety Report 5501617-3 (Version None)
Quarter: 2007Q4

REPORT INFORMATION
  Report Type: 
  Country: None (occurrence: None)
  Receive Date: 20071022
  Receipt Date: 20060705
  Transmission Date: 20080405
  Serious: Yes (Congenital Anomaly, Other)
  Sender: FDA-Public Use
  Company Number: 1713747/2007/000011

PATIENT
  Sex: Male
  Weight: 61.5 kg

DRUGS (1)
  1. DELFLEX W/ DEXTROSE 1.5% [Suspect]
     Dosage: INTRAPERITONEAL
     Route: 033
     Dates: start: 20060701

REACTIONS (1)
  - PHARMACEUTICAL PRODUCT COMPLAINT [None]
